FAERS Safety Report 6421366-7 (Version None)
Quarter: 2009Q4

REPORT INFORMATION
  Report Type: 
  Country: None (occurrence: None)
  Receive Date: 20091030
  Receipt Date: 20091023
  Transmission Date: 20100525
  Serious: No
  Sender: FDA-Public Use
  Company Number: PHHY2009JP43081

PATIENT

DRUGS (2)
  1. COMTAN [Suspect]
     Dosage: UNK
     Route: 048
  2. DOPS [Suspect]
     Dosage: UNK

REACTIONS (1)
  - LYMPHOEDEMA [None]
